FAERS Safety Report 10022391 (Version 2)
Quarter: 2014Q1

REPORT INFORMATION
  Report Type: Spontaneous
  Country: DE (occurrence: None)
  Receive Date: 20131223
  Receipt Date: 20140312
  Transmission Date: 20141002
  Serious: Yes (Other)
  Sender: FDA-Public Use
  Company Number: 2013DE0506

PATIENT
  Sex: Male

DRUGS (2)
  1. ANAKINRA (ANAKINRA) [Suspect]
     Route: 064
  2. CANAKINUMAB (CANAKINUMAB) (CANAKINUMAB) [Concomitant]

REACTIONS (5)
  - Respiratory failure [None]
  - Transient tachypnoea of the newborn [None]
  - Caesarean section [None]
  - Hypotension [None]
  - Foetal exposure during pregnancy [None]
